FAERS Safety Report 8677325 (Version 2)
Quarter: 2012Q4

REPORT INFORMATION
  Report Type: 
  Country: PE (occurrence: PE)
  Receive Date: 20120723
  Receipt Date: 20121120
  Transmission Date: 20130627
  Serious: Yes (Hospitalization, Disabling, Other)
  Sender: FDA-Public Use
  Company Number: PE-GENZYME-FABR-1002633

PATIENT
  Age: 43 Year
  Sex: Male
  Weight: 55 kg

DRUGS (1)
  1. FABRAZYME [Suspect]
     Indication: FABRY^S DISEASE
     Dosage: 1 mg/kg, q2w
     Route: 042
     Dates: start: 20111210

REACTIONS (3)
  - Cerebral infarction [Not Recovered/Not Resolved]
  - Amaurosis [Not Recovered/Not Resolved]
  - Optic neuritis [Not Recovered/Not Resolved]
